FAERS Safety Report 6967860-1 (Version None)
Quarter: 2010Q3

REPORT INFORMATION
  Report Type: 
  Country: None (occurrence: None)
  Receive Date: 20100907
  Receipt Date: 20100320
  Transmission Date: 20110219
  Serious: No
  Sender: FDA-Public Use
  Company Number: A0851907A

PATIENT
  Sex: Female

DRUGS (1)
  1. REQUIP [Suspect]
     Indication: RESTLESS LEGS SYNDROME
     Dosage: 1MG PER DAY

REACTIONS (1)
  - DRUG INEFFECTIVE [None]
